FAERS Safety Report 10342964 (Version 1)
Quarter: 2014Q3

REPORT INFORMATION
  Report Type: Report from Study
  Country: US (occurrence: US)
  Receive Date: 20140725
  Receipt Date: 20140725
  Transmission Date: 20150326
  Serious: Yes (Hospitalization)
  Sender: FDA-Public Use
  Company Number: PHEH2014US014628

PATIENT
  Sex: Male

DRUGS (2)
  1. CLOZARIL [Suspect]
     Active Substance: CLOZAPINE
     Dosage: 100 MG
  2. CLOZARIL [Suspect]
     Active Substance: CLOZAPINE
     Dosage: UKN

REACTIONS (2)
  - Suicidal ideation [Unknown]
  - Depression [Unknown]
